FAERS Safety Report 12854015 (Version 1)
Quarter: 2016Q4

REPORT INFORMATION
  Report Type: Spontaneous
  Country: JP (occurrence: JP)
  Receive Date: 20161017
  Receipt Date: 20161017
  Transmission Date: 20170207
  Serious: Yes (Other)
  Sender: FDA-Public Use
  Company Number: JP-TEVA-700988ISR

PATIENT
  Age: 71 Year
  Sex: Male

DRUGS (5)
  1. PATANOL [Concomitant]
     Active Substance: OLOPATADINE HYDROCHLORIDE
  2. TANATRIL (IMIDAPRIL HYDROCHLORIDE) [Concomitant]
     Active Substance: IMIDAPRIL HYDROCHLORIDE
  3. BENET TABLET 75 MG [Suspect]
     Active Substance: RISEDRONATE SODIUM
     Indication: OSTEOPOROSIS
     Route: 048
     Dates: start: 20160803
  4. ALOSITOL (ALLOPURINOL) [Concomitant]
  5. CALBLOCK [Concomitant]
     Active Substance: AZELNIDIPINE

REACTIONS (4)
  - Mobility decreased [Recovering/Resolving]
  - Urinary incontinence [Recovered/Resolved]
  - Muscular weakness [Recovering/Resolving]
  - Malaise [Recovering/Resolving]

NARRATIVE: CASE EVENT DATE: 20160803
